FAERS Safety Report 6166121-0 (Version None)
Quarter: 2009Q2

REPORT INFORMATION
  Report Type: 
  Country: None (occurrence: None)
  Receive Date: 20090422
  Receipt Date: 20090422
  Transmission Date: 20091009
  Serious: No
  Sender: FDA-Public Use
  Company Number: None

PATIENT
  Age: 64 Year
  Sex: Female
  Weight: 55.112 kg

DRUGS (1)
  1. CHANTIX [Suspect]
     Indication: SMOKING CESSATION THERAPY
     Dosage: 1 MG B BID PO
     Route: 048
     Dates: start: 20080425, end: 20080516

REACTIONS (3)
  - CONSTIPATION [None]
  - DIARRHOEA [None]
  - NAUSEA [None]
